FAERS Safety Report 16741398 (Version 1)
Quarter: 2019Q3

REPORT INFORMATION
  Report Type: Spontaneous
  Country: IN (occurrence: IN)
  Receive Date: 20190826
  Receipt Date: 20190826
  Transmission Date: 20191005
  Serious: Yes (Hospitalization, Other)
  Sender: FDA-Public Use
  Company Number: IN-NOVAST LABORATORIES LTD.-2019NOV000026

PATIENT
  Age: 37 Year
  Sex: Female

DRUGS (4)
  1. PILOCARPINE. [Concomitant]
     Active Substance: PILOCARPINE
     Indication: INTRAOCULAR PRESSURE INCREASED
  2. ACETAZOLAMIDE. [Suspect]
     Active Substance: ACETAZOLAMIDE
     Indication: INTRAOCULAR PRESSURE INCREASED
  3. PILOCARPINE. [Concomitant]
     Active Substance: PILOCARPINE
     Indication: FLAT ANTERIOR CHAMBER OF EYE
     Dosage: UNK
     Route: 065
  4. ACETAZOLAMIDE. [Suspect]
     Active Substance: ACETAZOLAMIDE
     Indication: FLAT ANTERIOR CHAMBER OF EYE
     Dosage: UNK
     Route: 065

REACTIONS (3)
  - Therapeutic product cross-reactivity [Recovered/Resolved]
  - Angle closure glaucoma [Recovered/Resolved]
  - Idiosyncratic drug reaction [Recovered/Resolved]
